FAERS Safety Report 5751337-5 (Version None)
Quarter: 2008Q2

REPORT INFORMATION
  Report Type: 
  Country: None (occurrence: None)
  Receive Date: 20080523
  Receipt Date: 20070720
  Transmission Date: 20081010
  Serious: Yes (Hospitalization)
  Sender: FDA-Public Use
  Company Number: FDB-2007-015

PATIENT
  Age: 57 Year
  Sex: Male

DRUGS (2)
  1. IOBENGUANE SULFATE I 131 [Suspect]
     Indication: PHAEOCHROMOCYTOMA
     Dosage: 25.5MCI IN 0.58ML - IV
     Route: 042
     Dates: start: 20070306
  2. LOTREL [Concomitant]

REACTIONS (2)
  - CHILLS [None]
  - PYREXIA [None]
